FAERS Safety Report 7010939-9 (Version None)
Quarter: 2010Q3

REPORT INFORMATION
  Report Type: 
  Country: None (occurrence: None)
  Receive Date: 20100923
  Receipt Date: 20100917
  Transmission Date: 20110219
  Serious: Yes (Other)
  Sender: FDA-Public Use
  Company Number: DE-AMGEN-KDL428947

PATIENT
  Sex: Female
  Weight: 61 kg

DRUGS (1)
  1. NPLATE [Suspect]
     Indication: PRODUCT USED FOR UNKNOWN INDICATION
     Route: 058
     Dates: start: 20100317, end: 20100825

REACTIONS (8)
  - DERMATITIS ALLERGIC [None]
  - EMOTIONAL DISTRESS [None]
  - EYELID OEDEMA [None]
  - HYPERSENSITIVITY [None]
  - RASH GENERALISED [None]
  - RASH PUSTULAR [None]
  - SWELLING FACE [None]
  - SWOLLEN TONGUE [None]
